FAERS Safety Report 7691256-0 (Version None)
Quarter: 2011Q3

REPORT INFORMATION
  Report Type: 
  Country: None (occurrence: None)
  Receive Date: 20110815
  Receipt Date: 20110729
  Transmission Date: 20111222
  Serious: Yes (Other)
  Sender: FDA-Public Use
  Company Number: GER/UKI/11/0020542

PATIENT
  Age: 58 Year
  Sex: Male

DRUGS (9)
  1. LIPITOR [Concomitant]
  2. ALBUTEROL SULFATE [Concomitant]
  3. NU-SEALS AAPIRIN (ACETYLSALICYLIC ACID) [Concomitant]
  4. CHLORPROMAZINE [Suspect]
     Indication: PRODUCT USED FOR UNKNOWN INDICATION
     Dosage: 100 MG, 3 IN 1 D
  5. OMEPRAZOLE [Concomitant]
  6. ZOPICLONE (ZOPICLONE) [Concomitant]
  7. RISPERIDONE [Suspect]
     Indication: PRODUCT USED FOR UNKNOWN INDICATION
     Dosage: 5 MG, 1 IN 1 D
     Dates: start: 20110211
  8. MOVICOL (NULYTELY /01053601/) [Concomitant]
  9. OLANZAPINE [Suspect]
     Indication: PRODUCT USED FOR UNKNOWN INDICATION

REACTIONS (14)
  - NEUTROPENIA [None]
  - AGITATION [None]
  - DISTURBANCE IN ATTENTION [None]
  - MENTAL IMPAIRMENT [None]
  - BODY TEMPERATURE INCREASED [None]
  - NEUTROPHIL COUNT INCREASED [None]
  - ACTIVITIES OF DAILY LIVING IMPAIRED [None]
  - WHITE BLOOD CELL COUNT INCREASED [None]
  - ABNORMAL BEHAVIOUR [None]
  - INSOMNIA [None]
  - TEARFULNESS [None]
  - PSYCHOTIC DISORDER [None]
  - AFFECT LABILITY [None]
  - WEIGHT DECREASED [None]
